FAERS Safety Report 7877778 (Version 5)
Quarter: 2014Q3

REPORT INFORMATION
  Report Type: Spontaneous
  Country: US (occurrence: None)
  Receive Date: 20110308
  Receipt Date: 20140829
  Transmission Date: 20150326
  Serious: Yes (Death)
  Sender: FDA-Public Use
  Company Number: 2011000892

PATIENT
  Age: 82 Year
  Sex: Male

DRUGS (3)
  1. TARCEVA [Suspect]
     Active Substance: ERLOTINIB HYDROCHLORIDE
     Indication: TRACHEAL CANCER
     Dosage: 150 MG, UID/QD, ORAL
     Route: 048
     Dates: start: 20110120
  2. TARCEVA [Suspect]
     Active Substance: ERLOTINIB HYDROCHLORIDE
     Indication: LUNG NEOPLASM MALIGNANT
     Dosage: 150 MG, UID/QD, ORAL
     Route: 048
     Dates: start: 20110120
  3. TARCEVA [Suspect]
     Active Substance: ERLOTINIB HYDROCHLORIDE
     Indication: NEOPLASM MALIGNANT
     Dosage: 150 MG, UID/QD, ORAL
     Route: 048
     Dates: start: 20110120

REACTIONS (1)
  - Pneumonia [None]
